FAERS Safety Report 11326444 (Version 1)
Quarter: 2015Q3

REPORT INFORMATION
  Report Type: Spontaneous
  Country: US (occurrence: US)
  Receive Date: 20150731
  Receipt Date: 20150731
  Transmission Date: 20151125
  Serious: No
  Sender: FDA-Public Use
  Company Number: US-ROCHE-1288987

PATIENT
  Sex: Female
  Weight: 48.12 kg

DRUGS (8)
  1. BOCEPREVIR [Suspect]
     Active Substance: BOCEPREVIR
     Indication: CHRONIC HEPATITIS C
     Dosage: 9 AM-1 PM- 9 PM
     Route: 065
     Dates: start: 20130709
  2. RIBASPHERE RIBAPAK [Suspect]
     Active Substance: RIBAVIRIN
     Indication: CHRONIC HEPATITIS C
     Route: 048
     Dates: start: 20130618
  3. PEGASYS [Suspect]
     Active Substance: PEGINTERFERON ALFA-2A
     Indication: CHRONIC HEPATITIS C
     Route: 058
     Dates: start: 20130618
  4. BOCEPREVIR [Suspect]
     Active Substance: BOCEPREVIR
     Route: 048
     Dates: start: 20130618
  5. RIBASPHERE RIBAPAK [Suspect]
     Active Substance: RIBAVIRIN
     Route: 048
  6. RIBASPHERE RIBAPAK [Suspect]
     Active Substance: RIBAVIRIN
     Route: 048
  7. SOVALDI [Suspect]
     Active Substance: SOFOSBUVIR
     Indication: PRODUCT USED FOR UNKNOWN INDICATION
     Route: 048
  8. RIBASPHERE RIBAPAK [Suspect]
     Active Substance: RIBAVIRIN
     Route: 048

REACTIONS (18)
  - Anaemia [Unknown]
  - Thirst [Unknown]
  - Insomnia [Unknown]
  - Swelling face [Unknown]
  - Confusional state [Unknown]
  - Tremor [Unknown]
  - Asthenia [Unknown]
  - Pain [Unknown]
  - Nausea [Unknown]
  - Weight decreased [Unknown]
  - Nervousness [Unknown]
  - Alopecia [Unknown]
  - Infection [Unknown]
  - Back pain [Unknown]
  - Fatigue [Unknown]
  - Extra dose administered [Unknown]
  - Arthralgia [Unknown]
  - Myalgia [Unknown]
